FAERS Safety Report 9936863 (Version 1)
Quarter: 2014Q1

REPORT INFORMATION
  Report Type: Spontaneous
  Country: US (occurrence: None)
  Receive Date: 20140115
  Receipt Date: 20140115
  Transmission Date: 20141002
  Serious: Yes (Hospitalization, Other)
  Sender: FDA-Public Use
  Company Number: 2013US002693

PATIENT
  Age: 63 Year
  Sex: Male
  Weight: 129 kg

DRUGS (27)
  1. ICLUSIG (PONATINIB) TABLET, 45MG [Suspect]
     Route: 048
     Dates: start: 201304, end: 20130429
  2. NEXIUM I.V. [Concomitant]
  3. PLAVIX (CLOPIDOGREL BISULFATE) (CLOPIDOGREL BISULFATE) [Concomitant]
  4. PRAVACHOL (PRAVASTATIN SODIUM) [Concomitant]
  5. OS-CAL (CALCIUM CARBONATE) TABLET [Concomitant]
  6. ZYRTEC (CETIRIZINE HYDROCHLORIDE) TABLET, 10 MG [Concomitant]
  7. CATAPRESS (CLONIDINE) TABLET, 0.2 MG [Concomitant]
  8. AGGRENOX (ACETYLSALICYLIC ACID, DIPYRIDAMOLE) CAPSULE, 200/25 MG [Concomitant]
  9. PLENDIL (FELODIPINE) TABLET, 10 MG [Concomitant]
  10. FERROUS SULFATE (FERROUS SULFATE) TABLET [Concomitant]
  11. OMEGA 3 (FISH OIL) CAPSULE, 340/1000 MG [Concomitant]
  12. LASIX (FUROSEMIDE) TABLET, 40 MG [Concomitant]
  13. NOVOLOG (INSULIN ASPART) [Concomitant]
  14. NOVOLOG (INSULIN ASPART) [Concomitant]
  15. LANTUS SOLOSTAR (INSULIN GLARGINE) [Concomitant]
  16. IMDUR (ISOSORBIDE MONONITRATE) TABLET, 60 MG [Concomitant]
  17. SYNTHROID (LEVOTHYROXINE SODIUM) TABLET, 50 UG [Concomitant]
  18. LISINOPRIL (LISINOPRIL DIHYDRATE) TABLET, 40 MG [Concomitant]
  19. TOPROL (METOPROLOL SUCCINATE) TABLET, 200 MG [Concomitant]
  20. K-DUR (POTASSIUM CHLORIDE) TABLET, 20 MEQ [Concomitant]
  21. ZANTAC (RANITIDINE HYDROCHLORIDE) TABLET, 150 MG [Concomitant]
  22. ZOCOR (SIMVASTATIN) TABLET, 40 MG [Concomitant]
  23. FLOMAXTRA (TAMSULOSIN HYDROCHLORIDE) CAPSULE, 0.4 MG [Concomitant]
  24. HYTRIN (TERAZOSIN HYDROCHLORIDE) CAPSULE, 2 MG [Concomitant]
  25. DESYREL (TRAZODONE HYDROCHLORIDE) TABLET, 50 MG [Concomitant]
  26. NEURONTIN (GABAPENTIN) [Concomitant]
  27. MULTIVITAMIN (VITAMINS NOS) CAPSULE [Concomitant]

REACTIONS (5)
  - Respiratory distress [None]
  - Pancreatitis [None]
  - Thrombocytopenia [None]
  - Constipation [None]
  - Hypertension [None]
